FAERS Safety Report 12569999 (Version 1)
Quarter: 2016Q3

REPORT INFORMATION
  Report Type: Spontaneous
  Country: US (occurrence: None)
  Receive Date: 20160718
  Receipt Date: 20160718
  Transmission Date: 20161109
  Serious: Yes (Hospitalization)
  Sender: FDA-Public Use
  Company Number: None

PATIENT
  Age: 61 Year
  Sex: Female
  Weight: 70.31 kg

DRUGS (5)
  1. METFORMIN [Suspect]
     Active Substance: METFORMIN HYDROCHLORIDE
     Indication: DIABETES MELLITUS
     Route: 048
     Dates: start: 20160614, end: 20160707
  2. CHLORTHALIDONE. [Concomitant]
     Active Substance: CHLORTHALIDONE
  3. OMEPRAZOLE. [Concomitant]
     Active Substance: OMEPRAZOLE
  4. AMLODIPINE [Concomitant]
     Active Substance: AMLODIPINE BESYLATE
  5. L-THYROXINE [Concomitant]
     Active Substance: LEVOTHYROXINE

REACTIONS (7)
  - Myalgia [None]
  - Abdominal discomfort [None]
  - Fatigue [None]
  - Blood glucose increased [None]
  - Acute kidney injury [None]
  - Arthralgia [None]
  - Blood potassium decreased [None]

NARRATIVE: CASE EVENT DATE: 20160714
